APPROVED DRUG PRODUCT: CYSTOGRAFIN DILUTE
Active Ingredient: DIATRIZOATE MEGLUMINE
Strength: 18%
Dosage Form/Route: SOLUTION;URETHRAL
Application: N010040 | Product #022
Applicant: BRACCO DIAGNOSTICS INC
Approved: Nov 9, 1982 | RLD: Yes | RS: No | Type: RX